FAERS Safety Report 19662533 (Version 2)
Quarter: 2021Q3

REPORT INFORMATION
  Report Type: Report from Study
  Country: US (occurrence: US)
  Receive Date: 20210806
  Receipt Date: 20210831
  Transmission Date: 20211014
  Serious: No
  Sender: FDA-Public Use
  Company Number: US-ACADIA PHARMACEUTICALS INC.-ACA-2021-PIM-002561

PATIENT
  Sex: Male

DRUGS (9)
  1. QUETIAPINE. [Suspect]
     Active Substance: QUETIAPINE
  2. NUPLAZID [Suspect]
     Active Substance: PIMAVANSERIN TARTRATE
     Indication: HALLUCINATION
     Dosage: 34 MILLIGRAM, QD
     Route: 048
     Dates: start: 20210712
  3. FINASTERIDE. [Concomitant]
     Active Substance: FINASTERIDE
  4. RYTARY [Concomitant]
     Active Substance: CARBIDOPA\LEVODOPA
  5. TAMSULOSIN [Concomitant]
     Active Substance: TAMSULOSIN
  6. ATORVASTATIN [Concomitant]
     Active Substance: ATORVASTATIN
  7. NUPLAZID [Suspect]
     Active Substance: PIMAVANSERIN TARTRATE
     Indication: PARKINSON^S DISEASE PSYCHOSIS
     Dosage: 34 MILLIGRAM, QD
     Route: 048
     Dates: start: 20210419, end: 20210622
  8. NUPLAZID [Suspect]
     Active Substance: PIMAVANSERIN TARTRATE
     Indication: DELUSION
  9. HCTZ [Concomitant]
     Active Substance: HYDROCHLOROTHIAZIDE

REACTIONS (4)
  - Drug ineffective [Unknown]
  - Adverse drug reaction [Not Recovered/Not Resolved]
  - Feeling abnormal [Unknown]
  - Feeling abnormal [Recovered/Resolved]
